FAERS Safety Report 20151119 (Version 1)
Quarter: 2021Q4

REPORT INFORMATION
  Report Type: Spontaneous
  Country: PL (occurrence: PL)
  Receive Date: 20211206
  Receipt Date: 20211206
  Transmission Date: 20220303
  Serious: Yes (Life-Threatening, Other)
  Sender: FDA-Public Use
  Company Number: PL-PFIZER INC-202101091175

PATIENT
  Age: 60 Year
  Sex: Male

DRUGS (5)
  1. METHOTREXATE [Suspect]
     Active Substance: METHOTREXATE
     Indication: Psoriasis
     Dosage: 7.5 MILLIGRAM, QW
  2. METHOTREXATE [Suspect]
     Active Substance: METHOTREXATE
     Indication: Pustular psoriasis
  3. INFLIXIMAB [Suspect]
     Active Substance: INFLIXIMAB
     Indication: Psoriasis
     Dosage: 5 MILLIGRAM/KILOGRAM
  4. INFLIXIMAB [Suspect]
     Active Substance: INFLIXIMAB
     Dosage: UNK (CONTINUED ACCORDING TO THE STANDARD REGIMEN (WEEKS 0, 2, AND 6 AND 8-WEEKLY THEREAFTER)
  5. ACITRETIN [Concomitant]
     Active Substance: ACITRETIN
     Dosage: 35 MILLIGRAM, QD, (0.35 MG/KG)

REACTIONS (3)
  - Upper respiratory tract infection [Unknown]
  - Psoriasis [Recovering/Resolving]
  - Respiratory tract infection [Unknown]
